FAERS Safety Report 23296466 (Version 2)
Quarter: 2024Q1

REPORT INFORMATION
  Report Type: Other
  Country: MX (occurrence: None)
  Receive Date: 20231214
  Receipt Date: 20240118
  Transmission Date: 20240410
  Serious: Yes (Disabling, Other)
  Sender: FDA-Public Use
  Company Number: MX-ROCHE-3438078

PATIENT
  Age: 15 Year
  Sex: Female

DRUGS (1)
  1. ENSPRYNG [Suspect]
     Active Substance: SATRALIZUMAB-MWGE
     Indication: Neuromyelitis optica spectrum disorder
     Route: 058
     Dates: start: 20230827, end: 20231125

REACTIONS (16)
  - Pain in extremity [Unknown]
  - Hypoaesthesia [Unknown]
  - Headache [Unknown]
  - Myalgia [Unknown]
  - Pain [Unknown]
  - Spinal pain [Unknown]
  - Eye inflammation [Unknown]
  - Mood altered [Unknown]
  - Depressed mood [Unknown]
  - Dyspnoea [Unknown]
  - Spinal pain [Unknown]
  - Fall [Unknown]
  - Hypoaesthesia [Unknown]
  - Intervertebral discitis [Unknown]
  - Synovial rupture [Unknown]
  - Spinal disorder [Unknown]

NARRATIVE: CASE EVENT DATE: 20230901
